FAERS Safety Report 6029345-9 (Version None)
Quarter: 2009Q1

REPORT INFORMATION
  Report Type: 
  Country: None (occurrence: None)
  Receive Date: 20090105
  Receipt Date: 20081222
  Transmission Date: 20090719
  Serious: Yes (Congenital Anomaly)
  Sender: FDA-Public Use
  Company Number: 2008-185525-NL

PATIENT
  Sex: Male

DRUGS (1)
  1. ETONOGESTREL [Suspect]
     Dosage: DF
     Dates: start: 20080307, end: 20080913

REACTIONS (7)
  - ENLARGED CLITORIS [None]
  - GENITALIA EXTERNAL AMBIGUOUS [None]
  - GONADAL DYSGENESIS [None]
  - HYPOSPADIAS [None]
  - MATERNAL DRUGS AFFECTING FOETUS [None]
  - MOSAICISM [None]
  - PREGNANCY WITH IMPLANT CONTRACEPTIVE [None]
